FAERS Safety Report 7877824-1 (Version None)
Quarter: 2011Q4

REPORT INFORMATION
  Report Type: 
  Country: None (occurrence: None)
  Receive Date: 20111031
  Receipt Date: 20111031
  Transmission Date: 20120403
  Serious: No
  Sender: FDA-Public Use
  Company Number: None

PATIENT
  Age: 50 Year
  Sex: Female
  Weight: 68.038 kg

DRUGS (1)
  1. CAPZASIN HP [Suspect]
     Indication: ARTHRITIS
     Dosage: 3 TO 4 TIMES A DAY
     Dates: start: 20111024, end: 20111024

REACTIONS (1)
  - FEELING HOT [None]
